FAERS Safety Report 21500402 (Version 1)
Quarter: 2022Q4

REPORT INFORMATION
  Report Type: Spontaneous
  Country: CA (occurrence: CA)
  Receive Date: 20221025
  Receipt Date: 20221025
  Transmission Date: 20230113
  Serious: Yes (Other)
  Sender: FDA-Public Use
  Company Number: CA-JNJFOC-20221043865

PATIENT
  Age: 54 Year
  Sex: Male
  Weight: 119 kg

DRUGS (6)
  1. REMICADE [Suspect]
     Active Substance: INFLIXIMAB
     Indication: Crohn^s disease
     Route: 041
  2. CALCIUM [Concomitant]
     Active Substance: CALCIUM
  3. JAMP DICLOFENAC [Concomitant]
  4. NICODERM CQ [Concomitant]
     Active Substance: NICOTINE
  5. PREDNISONE [Concomitant]
     Active Substance: PREDNISONE
  6. VITAMIN B1 [Concomitant]
     Active Substance: THIAMINE HYDROCHLORIDE

REACTIONS (4)
  - Weight increased [Unknown]
  - Expired product administered [Unknown]
  - Inappropriate schedule of product administration [Unknown]
  - Incorrect dose administered [Unknown]
